FAERS Safety Report 9507347 (Version 1)
Quarter: 2013Q1

REPORT INFORMATION
  Report Type: Spontaneous
  Country: US (occurrence: None)
  Receive Date: 20130305
  Receipt Date: 20130305
  Transmission Date: 20140127
  Serious: Yes (Hospitalization, Other)
  Sender: FDA-Public Use
  Company Number: 163-21880-12052597

PATIENT
  Age: 59 Year
  Sex: Female

DRUGS (11)
  1. REVLIMID [Suspect]
     Indication: PLASMA CELL MYELOMA
     Route: 048
     Dates: start: 20100113, end: 2010
  2. VELCADE (BORTEZOMIDE) (UNKNOWN) [Concomitant]
  3. DECADRON (DEXAMETHASONE) (4 MILLIGRAM) (UNKNOWN) [Concomitant]
  4. AREDIA (PAMIDRONATE DISODIUM) (UNKNOWN) [Concomitant]
  5. ARANESP (DARBESPOETIN ALFA) (UNKNOWN) [Concomitant]
  6. RANITIDINE (RANITIDINE) (UNKNOWNN) [Concomitant]
  7. ALLOPURINOL (ALLOPURINOL) (UNKNOWN) [Concomitant]
  8. KCL (POTASSIUM CHLORIDE) (UNKNOWN) [Concomitant]
  9. ALDACTONE (SPRIONOLACTONE) (UNKNOWN) [Concomitant]
  10. KCL (POTASSIUM CHLORIDE) [Concomitant]
  11. ASA (ACEYTLSALICYLIC ACID) (UNKNOWN) [Concomitant]

REACTIONS (3)
  - Pneumonia [None]
  - Atrial fibrillation [None]
  - Hypotension [None]
